FAERS Safety Report 9254710 (Version 1)
Quarter: 2013Q2

REPORT INFORMATION
  Report Type: Spontaneous
  Country: IT (occurrence: IT)
  Receive Date: 20130425
  Receipt Date: 20130425
  Transmission Date: 20140414
  Serious: Yes (Other)
  Sender: FDA-Public Use
  Company Number: IT-PFIZER INC-2013129583

PATIENT
  Age: 81 Year
  Sex: Male
  Weight: 65 kg

DRUGS (7)
  1. CELEBREX [Suspect]
     Indication: OSTEOARTHRITIS
     Dosage: 200 MG, 1X/DAY
     Route: 048
     Dates: start: 20130401, end: 20130411
  2. PERINDOPRIL [Concomitant]
     Indication: ESSENTIAL HYPERTENSION
     Dosage: 4 MG, UNK
     Route: 048
  3. NATECAL D [Concomitant]
     Dosage: UNK
  4. TRUSOPT [Concomitant]
     Dosage: UNK
  5. DIFOSFONAL [Concomitant]
     Dosage: 100 MG, UNK
     Route: 030
  6. EUTIROX [Concomitant]
     Indication: HYPOTHYROIDISM
     Dosage: 75 UG, UNK
     Route: 048
  7. CARDIOASPIRIN [Concomitant]
     Dosage: 100 MG, UNK
     Route: 048

REACTIONS (1)
  - Rash morbilliform [Recovering/Resolving]
